FAERS Safety Report 10079197 (Version 2)
Quarter: 2014Q2

REPORT INFORMATION
  Report Type: Report from Study
  Country: NL (occurrence: NL)
  Receive Date: 20140415
  Receipt Date: 20140421
  Transmission Date: 20141212
  Serious: Yes (Hospitalization)
  Sender: FDA-Public Use
  Company Number: PHHY2014NL044809

PATIENT
  Age: 67 Year
  Sex: Male

DRUGS (20)
  1. SANDOSTATIN LAR [Suspect]
     Indication: NEUROENDOCRINE TUMOUR
     Dosage: 30 MG/2 ML, ONCE EVERY 4 WEEKS
     Route: 030
  2. SANDOSTATIN LAR [Suspect]
     Dosage: 30 MG/2 ML, ONCE EVERY 4 WEEKS
     Route: 030
     Dates: start: 20140210
  3. SANDOSTATIN LAR [Suspect]
     Dosage: 30 MG/2 ML, ONCE EVERY 4 WEEKS
     Route: 030
     Dates: start: 20140310
  4. SANDOSTATIN LAR [Suspect]
     Dosage: 30 MG/2 ML, ONCE EVERY 4 WEEKS
     Route: 030
     Dates: start: 20140409
  5. MACROGOL [Concomitant]
     Dosage: UNK UKN, 1DD
  6. INSULIN DETEMIR [Concomitant]
     Dosage: 50 U, 1DD50 U
  7. FERRO FUMARAT [Concomitant]
     Dosage: 200 MG, 3DD200 MG
  8. FUROSEMIDE [Concomitant]
     Dosage: 40 MG, 1DD40MG
  9. METFORMIN [Concomitant]
     Dosage: 500 MG, 3DD500 MG
  10. LOSARTAN HCT [Concomitant]
     Dosage: 50/12.5 MG, 1DD1
  11. SPIRONOLACTONE [Concomitant]
     Dosage: 50 MG, 1DD50 MG
  12. PRAVASTATIN [Concomitant]
     Dosage: 20 MG, 1DD40 MG
  13. INSULIN ASPART [Concomitant]
     Dosage: UNK UKN, AS AGREED
  14. SOTALOL [Concomitant]
     Dosage: 40 MG, 3DD40 MG
  15. ASPIRIN\DIPYRIDAMOLE [Concomitant]
     Dosage: 25/200 MG, 2DD1
  16. ESOMEPRAZOLE [Concomitant]
     Dosage: 40 MG, 1DD40 MG
  17. PARACETAMOL [Concomitant]
     Dosage: 500 MG, 4DD1000 MG
  18. ACENOCOUMAROL [Concomitant]
     Dosage: 1 MG, AS AGREED
  19. OCTREOTIDE [Concomitant]
     Dosage: 30 MG, 1X PER MONTH
  20. HYDROXOCOBALAMINE [Concomitant]
     Dosage: 500 UG/ML, (1000 UG 1X PER 4 WEEKS)

REACTIONS (4)
  - Urinary tract infection [Recovering/Resolving]
  - Fall [Recovered/Resolved]
  - Dehydration [Recovered/Resolved]
  - Hypoglycaemia [Recovered/Resolved]
